FAERS Safety Report 9616892 (Version 2)
Quarter: 2013Q4

REPORT INFORMATION
  Report Type: Spontaneous
  Country: FR (occurrence: FR)
  Receive Date: 20131011
  Receipt Date: 20131106
  Transmission Date: 20140711
  Serious: Yes (Other)
  Sender: FDA-Public Use
  Company Number: PHHY2013FR113956

PATIENT
  Age: 68 Year
  Sex: Female

DRUGS (6)
  1. FEMARA [Suspect]
     Indication: BREAST CANCER
     Dosage: UNK UKN, QD
     Route: 048
     Dates: start: 201002, end: 201303
  2. CRESTOR [Concomitant]
     Indication: HYPERCHOLESTEROLAEMIA
     Dosage: 5 UKN, QD
     Route: 048
  3. OLMETEC [Concomitant]
     Indication: HYPERTENSION
     Dosage: 10 UKN, QD
     Route: 048
     Dates: start: 2010
  4. ONGLYZA [Concomitant]
     Indication: TYPE 2 DIABETES MELLITUS
     Dosage: UNK UKN, QD
     Route: 048
     Dates: start: 2012
  5. NOVONORM [Concomitant]
     Indication: TYPE 2 DIABETES MELLITUS
  6. NORMISON [Concomitant]
     Dosage: UNK UKN, TID
     Route: 048
     Dates: start: 2012

REACTIONS (11)
  - Confusional state [Unknown]
  - Apraxia [Unknown]
  - Amnesia [Unknown]
  - Nerve injury [Unknown]
  - Angiosclerosis [Unknown]
  - Atrophy [Unknown]
  - Cerebral microhaemorrhage [Unknown]
  - Cerebral atrophy [Unknown]
  - Aphasia [Unknown]
  - Disorientation [Unknown]
  - Agnosia [Unknown]
